FAERS Safety Report 7535769-0 (Version None)
Quarter: 2011Q2

REPORT INFORMATION
  Report Type: 
  Country: None (occurrence: None)
  Receive Date: 20110609
  Receipt Date: 20110311
  Transmission Date: 20111010
  Serious: No
  Sender: FDA-Public Use
  Company Number: US-KINGPHARMUSA00001-K201100269

PATIENT
  Age: 70 Year
  Sex: Female

DRUGS (1)
  1. EMBEDA [Suspect]
     Dosage: 80 MG, UNK

REACTIONS (2)
  - DIARRHOEA [None]
  - DRUG INEFFECTIVE [None]
